FAERS Safety Report 24116221 (Version 3)
Quarter: 2024Q3

REPORT INFORMATION
  Report Type: Spontaneous
  Country: US (occurrence: US)
  Receive Date: 20240722
  Receipt Date: 20240829
  Transmission Date: 20241017
  Serious: Yes (Other)
  Sender: MELINTA THERAPEUTICS
  Company Number: US-MELINTA THERAPEUTICS, LLC-US-MLNT-24-00346

PATIENT

DRUGS (4)
  1. KIMYRSA [Suspect]
     Active Substance: ORITAVANCIN DIPHOSPHATE
     Indication: Enterococcal infection
     Dosage: 1200 MILLIGRAM, SINGLE
     Route: 041
     Dates: start: 20240702, end: 20240702
  2. KIMYRSA [Suspect]
     Active Substance: ORITAVANCIN DIPHOSPHATE
     Dosage: 1200 MILLIGRAM, SINGLE
     Route: 041
     Dates: start: 20240704, end: 20240704
  3. KIMYRSA [Suspect]
     Active Substance: ORITAVANCIN DIPHOSPHATE
     Dosage: 1200 MILLIGRAM, SINGLE
     Route: 041
     Dates: start: 20240706, end: 20240706
  4. KIMYRSA [Suspect]
     Active Substance: ORITAVANCIN DIPHOSPHATE
     Dosage: 1200 MILLIGRAM, SINGLE
     Route: 041
     Dates: start: 20240709, end: 20240709

REACTIONS (5)
  - Acute kidney injury [Recovering/Resolving]
  - Perforation bile duct [Unknown]
  - Pancreatitis [Recovering/Resolving]
  - Multiple use of single-use product [Unknown]
  - Off label use [Unknown]

NARRATIVE: CASE EVENT DATE: 20240702
